FAERS Safety Report 15630314 (Version 1)
Quarter: 2018Q4

REPORT INFORMATION
  Report Type: Spontaneous
  Country: NL (occurrence: NL)
  Receive Date: 20181118
  Receipt Date: 20181118
  Transmission Date: 20190205
  Serious: Yes (Other)
  Sender: FDA-Public Use
  Company Number: NL-ABBVIE-18K-114-2554931-00

PATIENT
  Age: 30 Year
  Sex: Female

DRUGS (6)
  1. AZATHIOPRINE. [Concomitant]
     Active Substance: AZATHIOPRINE
     Indication: CROHN^S DISEASE
     Dates: start: 2008
  2. AZATHIOPRINE. [Concomitant]
     Active Substance: AZATHIOPRINE
     Dates: start: 2018
  3. HUMIRA [Suspect]
     Active Substance: ADALIMUMAB
     Route: 058
     Dates: start: 201710
  4. PREDNISONE. [Concomitant]
     Active Substance: PREDNISONE
     Indication: CONDITION AGGRAVATED
     Dates: start: 2011
  5. HUMIRA [Suspect]
     Active Substance: ADALIMUMAB
     Indication: PRODUCT USED FOR UNKNOWN INDICATION
     Route: 058
     Dates: start: 2011, end: 201704
  6. HUMIRA [Suspect]
     Active Substance: ADALIMUMAB
     Route: 058
     Dates: start: 2018, end: 2018

REACTIONS (16)
  - Oedema [Unknown]
  - Rash pustular [Unknown]
  - Proctalgia [Unknown]
  - Anal abscess [Unknown]
  - Anal abscess [Unknown]
  - Exposure during pregnancy [Unknown]
  - Constipation [Unknown]
  - Lymphadenopathy [Unknown]
  - Normal newborn [Unknown]
  - Proctalgia [Unknown]
  - Haemorrhage [Unknown]
  - Mass [Unknown]
  - Pyrexia [Unknown]
  - Large intestinal stenosis [Unknown]
  - Localised oedema [Unknown]
  - Fistula [Unknown]

NARRATIVE: CASE EVENT DATE: 2017
